FAERS Safety Report 6188646-4 (Version None)
Quarter: 2009Q2

REPORT INFORMATION
  Report Type: 
  Country: None (occurrence: None)
  Receive Date: 20090513
  Receipt Date: 20090505
  Transmission Date: 20091009
  Serious: Yes (Life-Threatening, Hospitalization)
  Sender: FDA-Public Use
  Company Number: JP-ASTRAZENECA-2009SE01746

PATIENT
  Age: 80 Year
  Sex: Female

DRUGS (12)
  1. BLOPRESS [Suspect]
     Indication: DRUG USE FOR UNKNOWN INDICATION
     Route: 048
     Dates: start: 20080101, end: 20090213
  2. SOTALEX [Suspect]
     Indication: DRUG USE FOR UNKNOWN INDICATION
     Route: 048
     Dates: start: 20080101, end: 20090213
  3. IRFEN [Suspect]
     Indication: DRUG USE FOR UNKNOWN INDICATION
     Route: 048
     Dates: start: 20090212, end: 20090213
  4. LIQUAEMIN INJ [Concomitant]
     Route: 042
  5. SINTROM [Concomitant]
     Route: 048
  6. DIGOXIN [Concomitant]
     Route: 048
  7. ELTROXIN [Concomitant]
     Route: 048
  8. SPASMO-URGENIN NEO [Concomitant]
     Route: 048
  9. DAFALGAN [Concomitant]
     Route: 048
  10. NEXIUM [Concomitant]
     Route: 048
  11. GLUCOVANCE [Concomitant]
     Dosage: METFORMIN/GLIBENCLAMIDE 500/2.5 MG
     Route: 048
     Dates: end: 20090212
  12. MORPHINE [Concomitant]
     Route: 048
     Dates: end: 20090213

REACTIONS (2)
  - CARDIOGENIC SHOCK [None]
  - RENAL FAILURE ACUTE [None]
